FAERS Safety Report 4299092-2 (Version None)
Quarter: 2004Q1

REPORT INFORMATION
  Report Type: 
  Country: None (occurrence: None)
  Receive Date: 20040219
  Receipt Date: 20040209
  Transmission Date: 20041129
  Serious: Yes (Hospitalization)
  Sender: FDA-Public Use
  Company Number: PT-BRISTOL-MYERS SQUIBB COMPANY-12503744

PATIENT
  Age: 79 Year
  Sex: Female

DRUGS (3)
  1. GLUCOVANCE [Suspect]
     Indication: DIABETES MELLITUS NON-INSULIN-DEPENDENT
     Route: 048
     Dates: end: 20040111
  2. CLOPIDOGREL BISULFATE [Concomitant]
     Route: 048
  3. SIMVASTATIN [Concomitant]
     Route: 048

REACTIONS (3)
  - BRADYCARDIA [None]
  - CONVULSION [None]
  - HYPOGLYCAEMIA [None]
